FAERS Safety Report 10121075 (Version 2)
Quarter: 2014Q2

REPORT INFORMATION
  Report Type: Other
  Country: US (occurrence: US)
  Receive Date: 20140425
  Receipt Date: 20140619
  Transmission Date: 20141212
  Serious: Yes (Hospitalization, Other)
  Sender: FDA-Public Use
  Company Number: US-GSKPPD-2014GSK001067

PATIENT
  Age: 60 Year
  Sex: Male
  Weight: 97.61 kg

DRUGS (7)
  1. AVANDIA [Suspect]
     Indication: DIABETES MELLITUS
     Route: 048
     Dates: start: 2002, end: 2005
  2. PLAVIX [Concomitant]
     Route: 048
  3. NORVASC [Concomitant]
     Route: 048
  4. ASPIRIN [Concomitant]
     Route: 048
  5. METOPROLOL [Concomitant]
     Route: 048
  6. DIGOXIN [Concomitant]
     Route: 048
  7. DIOVAN HCTZ [Concomitant]
     Dosage: 80/12.5MG
     Route: 048

REACTIONS (3)
  - Myocardial infarction [Recovered/Resolved]
  - Cardiac failure congestive [None]
  - Atrial fibrillation [Recovered/Resolved]
